FAERS Safety Report 9440168 (Version 1)
Quarter: 2013Q3

REPORT INFORMATION
  Report Type: Spontaneous
  Country: US (occurrence: US)
  Receive Date: 20130805
  Receipt Date: 20130805
  Transmission Date: 20140515
  Serious: Yes (Other)
  Sender: FDA-Public Use
  Company Number: PHEH2013US015913

PATIENT
  Sex: Male

DRUGS (7)
  1. TEKTURNA HCT [Suspect]
     Dosage: 300 MG, QD
  2. NITROSTAT [Concomitant]
     Dosage: 0.4 MG, UNK
  3. EXFORGE [Concomitant]
  4. TOPROL XL [Concomitant]
     Dosage: 100 MG, UNK
  5. LOVAZA [Concomitant]
     Dosage: 1 G, UNK
  6. ULORIC [Concomitant]
     Dosage: 40 MG, UNK
  7. NEUTRA-PHOS [Concomitant]

REACTIONS (8)
  - Diabetes mellitus [Unknown]
  - Acute myocardial infarction [Unknown]
  - Hypercholesterolaemia [Unknown]
  - Gout [Unknown]
  - Bursitis [Unknown]
  - Palpitations [Unknown]
  - Renal failure [Unknown]
  - Hypertension [Unknown]
